FAERS Safety Report 4267966-4 (Version None)
Quarter: 2004Q1

REPORT INFORMATION
  Report Type: 
  Country: None (occurrence: None)
  Receive Date: 20040109
  Receipt Date: 20040105
  Transmission Date: 20041129
  Serious: Yes (Death, Life-Threatening, Hospitalization)
  Sender: FDA-Public Use
  Company Number: WAES 0401GBR00020

PATIENT
  Age: 90 Year
  Sex: Male

DRUGS (4)
  1. ASPIRIN [Concomitant]
     Route: 048
  2. NAFRONYL OXALATE [Concomitant]
     Route: 048
  3. OXYBUTYNIN CHLORIDE [Concomitant]
     Route: 048
  4. VIOXX [Suspect]
     Indication: ARTHRALGIA
     Route: 048
     Dates: start: 20031023

REACTIONS (1)
  - GASTROINTESTINAL HAEMORRHAGE [None]
